FAERS Safety Report 15813579 (Version 1)
Quarter: 2019Q1

REPORT INFORMATION
  Report Type: Spontaneous
  Country: GB (occurrence: GB)
  Receive Date: 20190111
  Receipt Date: 20190111
  Transmission Date: 20190417
  Serious: Yes (Hospitalization)
  Sender: FDA-Public Use
  Company Number: GB-B.I. PHARMACEUTICALS,INC./RIDGEFIELD-2019-12-000102

PATIENT
  Age: 52 Year
  Sex: Male
  Weight: 142 kg

DRUGS (1)
  1. JARDIANCE [Suspect]
     Active Substance: EMPAGLIFLOZIN
     Indication: TYPE 2 DIABETES MELLITUS
     Route: 048
     Dates: end: 20181204

REACTIONS (3)
  - Euglycaemic diabetic ketoacidosis [Recovered/Resolved]
  - Soft tissue infection [Unknown]
  - Sepsis [Unknown]

NARRATIVE: CASE EVENT DATE: 20181204
